FAERS Safety Report 8045687-X (Version None)
Quarter: 2012Q1

REPORT INFORMATION
  Report Type: 
  Country: None (occurrence: None)
  Receive Date: 20120113
  Receipt Date: 20120104
  Transmission Date: 20120608
  Serious: Yes (Other)
  Sender: FDA-Public Use
  Company Number: US-UCBSA-048698

PATIENT
  Age: 42 Year
  Sex: Female

DRUGS (1)
  1. CIMZIA [Suspect]
     Indication: CROHN'S DISEASE
     Route: 058
     Dates: start: 20100302, end: 20111208

REACTIONS (3)
  - HYPERSENSITIVITY [None]
  - PANCREATITIS [None]
  - ARTHRALGIA [None]
